FAERS Safety Report 8687614 (Version 2)
Quarter: 2013Q4

REPORT INFORMATION
  Report Type: Report from Study
  Country: US (occurrence: US)
  Receive Date: 20120727
  Receipt Date: 20131031
  Transmission Date: 20140711
  Serious: Yes (Death, Hospitalization, Other)
  Sender: FDA-Public Use
  Company Number: US-MSD-2012SP031736

PATIENT
  Age: 57 Year
  Sex: Female

DRUGS (3)
  1. PEG-INTRON [Suspect]
     Indication: HEPATITIS C
     Dosage: UNK
     Dates: start: 20120504, end: 20120629
  2. REBETOL [Suspect]
     Indication: HEPATITIS C
     Dosage: UNK
     Dates: start: 20120504, end: 20120629
  3. VICTRELIS [Suspect]
     Indication: HEPATITIS C
     Dosage: UNK
     Dates: start: 20120608, end: 20120629

REACTIONS (21)
  - Death [Fatal]
  - Full blood count decreased [Unknown]
  - Anaemia [Unknown]
  - Vomiting [Unknown]
  - Haemoglobin decreased [Unknown]
  - White blood cell count decreased [Unknown]
  - Diarrhoea [Unknown]
  - Feeling of body temperature change [Unknown]
  - Dysphagia [Unknown]
  - Hypogeusia [Unknown]
  - Aphonia [Unknown]
  - Dysgeusia [Unknown]
  - Cheilitis [Unknown]
  - Oropharyngeal pain [Unknown]
  - Dehydration [Unknown]
  - Asthenia [Unknown]
  - Chills [Unknown]
  - Influenza like illness [Unknown]
  - Stomatitis [Unknown]
  - Pharyngitis [Unknown]
  - Weight decreased [Unknown]
